FAERS Safety Report 24557040 (Version 1)
Quarter: 2024Q4

REPORT INFORMATION
  Report Type: Spontaneous
  Country: US (occurrence: US)
  Receive Date: 20241028
  Receipt Date: 20241028
  Transmission Date: 20250115
  Serious: Yes (Death, Life-Threatening, Hospitalization, Other)
  Sender: AUROBINDO
  Company Number: US-MLMSERVICE-20200421-2261191-2

PATIENT
  Age: 61 Year
  Sex: Female

DRUGS (5)
  1. SULFAMETHOXAZOLE\TRIMETHOPRIM [Suspect]
     Active Substance: SULFAMETHOXAZOLE\TRIMETHOPRIM
     Indication: Antibiotic prophylaxis
     Dosage: 1 DOSAGE FORM (THREE TIMES WEEKLY, DOUBLE STRENGTH)
     Route: 065
  2. ACYCLOVIR [Concomitant]
     Active Substance: ACYCLOVIR
     Indication: Antibiotic prophylaxis
     Dosage: 400 MILLIGRAM, TWO TIMES A DAY
     Route: 065
  3. MYCOPHENOLATE MOFETIL [Concomitant]
     Active Substance: MYCOPHENOLATE MOFETIL
     Indication: Immunosuppressant drug therapy
     Dosage: MAINTENANCE IMMUNE SUPPRESSION
     Route: 065
  4. TACROLIMUS [Concomitant]
     Active Substance: TACROLIMUS
     Indication: Immunosuppressant drug therapy
     Dosage: MAINTENANCE IMMUNE SUPPRESSION
     Route: 065
  5. PREDNISONE [Concomitant]
     Active Substance: PREDNISONE
     Indication: Immunosuppressant drug therapy
     Dosage: MAINTENANCE IMMUNE SUPPRESSION
     Route: 065

REACTIONS (19)
  - Enterococcal infection [Fatal]
  - Abdominal wall infection [Fatal]
  - Pneumonia klebsiella [Fatal]
  - Clostridium difficile colitis [Fatal]
  - Cholestasis [Fatal]
  - Pleural effusion [Fatal]
  - Cytomegalovirus infection [Fatal]
  - Hepatic necrosis [Fatal]
  - Abdominal wall abscess [Fatal]
  - Sepsis syndrome [Fatal]
  - Encephalitis cytomegalovirus [Fatal]
  - Toxoplasmosis [Fatal]
  - Subarachnoid haemorrhage [Unknown]
  - Acute kidney injury [Unknown]
  - Atelectasis [Unknown]
  - Respiratory failure [Unknown]
  - Hypotension [Unknown]
  - Small intestinal obstruction [Unknown]
  - Diarrhoea [Recovered/Resolved]
